FAERS Safety Report 22295472 (Version 1)
Quarter: 2023Q2

REPORT INFORMATION
  Report Type: Spontaneous
  Country: DE (occurrence: DE)
  Receive Date: 20230508
  Receipt Date: 20230508
  Transmission Date: 20230721
  Serious: Yes (Other)
  Sender: FDA-Public Use
  Company Number: None

PATIENT
  Age: 1 Day
  Sex: Female
  Weight: 2.426 kg

DRUGS (6)
  1. CITALOPRAM [Suspect]
     Active Substance: CITALOPRAM HYDROBROMIDE
     Indication: Depression
     Dosage: 10 MILLIGRAM, QD,(0 - 39.1 GESTATIONAL WEEK)
     Route: 064
     Dates: start: 20210206, end: 20211107
  2. REPEVAX [Concomitant]
     Active Substance: DIPHTHERIA AND TETANUS TOXOIDS AND ACELLULAR PERTUSSIS ADSORBED AND INACTIVATED POLIOVIRUS VACCINE
     Indication: Immunisation
     Dosage: UNK,(29.2 - 29.2 GESTATIONAL WEEK)
     Route: 064
     Dates: start: 20210830, end: 20210830
  3. COMIRNATY [Concomitant]
     Active Substance: TOZINAMERAN
     Indication: COVID-19 immunisation
     Dosage: UNK,(19.4 - 19.4 GESTATIONAL WEEK)
     Route: 064
     Dates: start: 20210623, end: 20210623
  4. COMIRNATY [Concomitant]
     Active Substance: TOZINAMERAN
     Dosage: UNK(25.4 - 25.4 GESTATIONAL WEEK)
     Route: 064
     Dates: start: 20210804, end: 20210804
  5. LEVOTHYROXINE SODIUM [Concomitant]
     Active Substance: LEVOTHYROXINE SODIUM
     Indication: Hypothyroidism
     Dosage: 50 MICROGRAM, QD(0 - 39.1 GESTATIONAL WEEK)
     Route: 064
     Dates: start: 20210206, end: 20211107
  6. SUMATRIPTAN [Concomitant]
     Active Substance: SUMATRIPTAN
     Indication: Migraine
     Dosage: UNK,(ABOUT ONCE MONTHLY,0 - 39.1 GESTATIONAL WEEK)
     Route: 064

REACTIONS (3)
  - Bradycardia neonatal [Unknown]
  - Small for dates baby [Recovered/Resolved]
  - Foetal exposure during pregnancy [Unknown]

NARRATIVE: CASE EVENT DATE: 20211101
